FAERS Safety Report 9080667 (Version 1)
Quarter: 2013Q1

REPORT INFORMATION
  Report Type: Spontaneous
  Country: US (occurrence: US)
  Receive Date: 20130218
  Receipt Date: 20130218
  Transmission Date: 20140127
  Serious: Yes (Other)
  Sender: FDA-Public Use
  Company Number: US-BRISTOL-MYERS SQUIBB COMPANY-17357880

PATIENT
  Age: 60 Year
  Sex: Female

DRUGS (5)
  1. ORENCIA [Suspect]
     Dosage: LAST INFUSION:NOVEMBER 2012
     Dates: start: 201006, end: 201211
  2. ARAVA [Concomitant]
  3. PRAVASTATINE [Concomitant]
  4. FLONASE [Concomitant]
  5. CLARITIN [Concomitant]

REACTIONS (1)
  - Lymphomatoid papulosis [Unknown]
